FAERS Safety Report 7310199-5 (Version None)
Quarter: 2011Q1

REPORT INFORMATION
  Report Type: 
  Country: None (occurrence: None)
  Receive Date: 20110224
  Receipt Date: 20110217
  Transmission Date: 20110831
  Serious: No
  Sender: FDA-Public Use
  Company Number: US-PFIZER INC-2011035931

PATIENT
  Sex: Female

DRUGS (2)
  1. GLYBURIDE [Concomitant]
     Indication: DIABETES MELLITUS
     Dosage: UNK
  2. LIPITOR [Suspect]
     Indication: CARDIAC DISORDER
     Dosage: UNK

REACTIONS (1)
  - HYPERTENSION [None]
